FAERS Safety Report 7597143-0 (Version None)
Quarter: 2011Q3

REPORT INFORMATION
  Report Type: 
  Country: None (occurrence: None)
  Receive Date: 20110708
  Receipt Date: 20110114
  Transmission Date: 20111222
  Serious: No
  Sender: FDA-Public Use
  Company Number: US-GLAXOSMITHKLINE-A0763445A

PATIENT
  Age: 66 Year
  Sex: Female

DRUGS (9)
  1. FLOVENT [Suspect]
     Indication: ASTHMA
     Dosage: 2PUFF THREE TIMES PER DAY
     Route: 055
  2. FLOVENT [Suspect]
     Dosage: 2PUFF TWICE PER DAY
     Route: 055
     Dates: start: 20100701
  3. VENTOLIN HFA [Suspect]
     Route: 055
  4. XOPENEX [Concomitant]
     Route: 055
  5. SEREVENT [Concomitant]
  6. SPIRIVA [Concomitant]
  7. MULTI-VITAMIN [Suspect]
  8. ALDACTONE [Concomitant]
  9. SINGULAIR [Concomitant]

REACTIONS (8)
  - PRODUCT QUALITY ISSUE [None]
  - DYSPHONIA [None]
  - THROAT IRRITATION [None]
  - CHEST PAIN [None]
  - CONTUSION [None]
  - PHARYNGEAL DISORDER [None]
  - SPEECH DISORDER [None]
  - JOINT SWELLING [None]
